FAERS Safety Report 13997434 (Version 2)
Quarter: 2017Q3

REPORT INFORMATION
  Report Type: Spontaneous
  Country: US (occurrence: US)
  Receive Date: 20170921
  Receipt Date: 20170925
  Transmission Date: 20171128
  Serious: No
  Sender: FDA-Public Use
  Company Number: US-BAYER-2017-173271

PATIENT
  Age: 86 Year
  Sex: Female
  Weight: 46.98 kg

DRUGS (6)
  1. TYLENOL PM [Concomitant]
     Active Substance: ACETAMINOPHEN\DIPHENHYDRAMINE
  2. AMBIEN [Concomitant]
     Active Substance: ZOLPIDEM TARTRATE
  3. FEMARA [Concomitant]
     Active Substance: LETROZOLE
  4. MIRALAX [Suspect]
     Active Substance: POLYETHYLENE GLYCOL 3350
     Route: 065
  5. PHILLIPS ORIGINAL MILK OF MAGNESIA [Suspect]
     Active Substance: MAGNESIUM HYDROXIDE
  6. ATENOLOL. [Concomitant]
     Active Substance: ATENOLOL

REACTIONS (1)
  - Dyschezia [Unknown]
